FAERS Safety Report 6145444-5 (Version None)
Quarter: 2009Q2

REPORT INFORMATION
  Report Type: 
  Country: None (occurrence: None)
  Receive Date: 20090402
  Receipt Date: 20090325
  Transmission Date: 20091009
  Serious: Yes (Hospitalization)
  Sender: FDA-Public Use
  Company Number: TRP_06147_2009

PATIENT
  Sex: Male

DRUGS (2)
  1. RIBAVIRIN [Suspect]
     Indication: HEPATITIS C
     Dosage: 1200 MG, DAILY;
     Dates: start: 20080401
  2. PEGASYS [Suspect]
     Indication: HEPATITIS C
     Dosage: 180 UG 1X/WEEK
     Dates: start: 20080401

REACTIONS (4)
  - FATIGUE [None]
  - MENTAL DISORDER [None]
  - PARTNER STRESS [None]
  - RASH MACULAR [None]
